FAERS Safety Report 8867407 (Version 1)
Quarter: 2012Q4

REPORT INFORMATION
  Report Type: 
  Country: US (occurrence: US)
  Receive Date: 20121025
  Receipt Date: 20121025
  Transmission Date: 20130627
  Serious: No
  Sender: FDA-Public Use
  Company Number: US-AMGEN-USASP2012016278

PATIENT
  Age: 58 Year
  Sex: Male
  Weight: 122 kg

DRUGS (11)
  1. ENBREL [Suspect]
     Indication: PRODUCT USED FOR UNKNOWN INDICATION
     Dosage: 50 mg, qwk
     Route: 058
  2. METFORMIN [Concomitant]
     Dosage: 500 mg, UNK
  3. LEVOXYL [Concomitant]
     Dosage: 150 mug, UNK
  4. LISINOPRIL [Concomitant]
     Dosage: 5 mg, UNK
  5. LIPITOR [Concomitant]
     Dosage: 10 mg, UNK
  6. ACTOS [Concomitant]
     Dosage: 30 mg, UNK
  7. SERTRALINE [Concomitant]
     Dosage: 50 mg, UNK
  8. TRIPLEX                            /00050502/ [Concomitant]
  9. ASA [Concomitant]
     Dosage: 81 mg, UNK
  10. MULTIVITAMIN                       /00097801/ [Concomitant]
  11. CALCIUM 500+D [Concomitant]

REACTIONS (1)
  - Oral infection [Unknown]
